FAERS Safety Report 10479174 (Version 3)
Quarter: 2017Q4

REPORT INFORMATION
  Report Type: Report from Study
  Country: None (occurrence: BR)
  Receive Date: 20140926
  Receipt Date: 20171102
  Transmission Date: 20180320
  Serious: Yes (Hospitalization)
  Sender: FDA-Public Use
  Company Number: BR-ABBVIE-14K-020-1287520-00

PATIENT
  Age: 42 Year
  Sex: Female
  Weight: 72 kg

DRUGS (2)
  1. HUMIRA [Suspect]
     Active Substance: ADALIMUMAB
     Indication: ANKYLOSING SPONDYLITIS
     Route: 058
     Dates: start: 20140917
  2. MESALAZINE [Concomitant]
     Active Substance: MESALAMINE
     Indication: COLITIS
     Route: 048
     Dates: start: 201203

REACTIONS (10)
  - Skin discolouration [Recovered/Resolved]
  - Erythema [Recovered/Resolved]
  - Angiopathy [Unknown]
  - Poor peripheral circulation [Unknown]
  - Dermatitis [Unknown]
  - Hypoaesthesia [Recovered/Resolved]
  - Peripheral coldness [Recovered/Resolved]
  - Inflammation [Unknown]
  - Pain [Unknown]
  - Blue toe syndrome [Recovered/Resolved]

NARRATIVE: CASE EVENT DATE: 2014
